FAERS Safety Report 4962311-0 (Version None)
Quarter: 2006Q1

REPORT INFORMATION
  Report Type: 
  Country: None (occurrence: None)
  Receive Date: 20060329
  Receipt Date: 20060309
  Transmission Date: 20060701
  Serious: Yes (Hospitalization)
  Sender: FDA-Public Use
  Company Number: 223212

PATIENT
  Age: 53 Year
  Sex: Female

DRUGS (4)
  1. HERCEPTIN [Suspect]
     Indication: BREAST CANCER
     Dosage: 2 MG/KG, 1/WEEK, INTRAVENOUS
     Route: 042
     Dates: end: 20060223
  2. CAPECITABINE (CAPECITABINE) [Suspect]
     Indication: BREAST CANCER
     Dosage: 825 MG/M2, BID, ORAL
     Route: 048
     Dates: end: 20060226
  3. DOCETAXEL (DOCETAXEL) [Suspect]
     Indication: BREAST CANCER
     Dosage: 75 MG/M2, Q3W, INTRAVENOUS
     Route: 042
     Dates: end: 20060216
  4. LEVAQUIN [Concomitant]

REACTIONS (1)
  - FEBRILE NEUTROPENIA [None]
